FAERS Safety Report 4423223-4 (Version None)
Quarter: 2004Q3

REPORT INFORMATION
  Report Type: 
  Country: None (occurrence: None)
  Receive Date: 20040713
  Receipt Date: 20031016
  Transmission Date: 20050211
  Serious: No
  Sender: FDA-Public Use
  Company Number: PHEH2003US09537

PATIENT
  Age: 45 Year
  Sex: Female
  Weight: 59 kg

DRUGS (4)
  1. ELIDEL [Suspect]
     Indication: RASH
     Dosage: TOPICAL
     Route: 061
     Dates: start: 20030730
  2. COLLAGEN (COLLAGEN) [Suspect]
     Dosage: INJECTION NOS
  3. KEFLEX [Concomitant]
  4. ALDACTONE [Concomitant]

REACTIONS (2)
  - CONTUSION [None]
  - PURPURA [None]
